FAERS Safety Report 13611865 (Version 1)
Quarter: 2017Q2

REPORT INFORMATION
  Report Type: Spontaneous
  Country: US (occurrence: US)
  Receive Date: 20170605
  Receipt Date: 20170605
  Transmission Date: 20170830
  Serious: Yes (Life-Threatening, Disabling)
  Sender: FDA-Public Use
  Company Number: None

PATIENT
  Age: 55 Year
  Sex: Male
  Weight: 63 kg

DRUGS (1)
  1. VIAGRA [Suspect]
     Active Substance: SILDENAFIL CITRATE
     Indication: VICTIM OF CHEMICAL SUBMISSION
     Dates: start: 20110725

REACTIONS (7)
  - Pain [None]
  - Victim of sexual abuse [None]
  - Blood pressure decreased [None]
  - Gait disturbance [None]
  - Victim of chemical submission [None]
  - Peripheral artery thrombosis [None]
  - Asthenia [None]

NARRATIVE: CASE EVENT DATE: 20110725
